FAERS Safety Report 25727921 (Version 1)
Quarter: 2025Q3

REPORT INFORMATION
  Report Type: Spontaneous
  Country: US (occurrence: US)
  Receive Date: 20250826
  Receipt Date: 20250826
  Transmission Date: 20251020
  Serious: No
  Sender: SANOFI AVENTIS
  Company Number: US-SA-2025SA254764

PATIENT
  Age: 66 Year
  Sex: Male

DRUGS (13)
  1. REZUROCK [Suspect]
     Active Substance: BELUMOSUDIL
     Indication: Myelodysplastic syndrome
     Dosage: 200 MG, QD
     Route: 048
  2. LANTUS [Concomitant]
     Active Substance: INSULIN GLARGINE
  3. LATANOPROST [Concomitant]
     Active Substance: LATANOPROST
  4. LEVOFLOXACIN [Concomitant]
     Active Substance: LEVOFLOXACIN
  5. LYUMJEV [Concomitant]
     Active Substance: INSULIN LISPRO-AABC
  6. METFORMIN [Concomitant]
     Active Substance: METFORMIN HYDROCHLORIDE
  7. METOPROLOL [Concomitant]
     Active Substance: METOPROLOL
  8. POSACONAZOLE [Concomitant]
     Active Substance: POSACONAZOLE
  9. POTASSIUM [Concomitant]
     Active Substance: POTASSIUM
  10. SIROLIMUS [Concomitant]
     Active Substance: SIROLIMUS
  11. TACROLIMUS [Concomitant]
     Active Substance: TACROLIMUS
  12. URSODIOL [Concomitant]
     Active Substance: URSODIOL
  13. VALTREX [Concomitant]
     Active Substance: VALACYCLOVIR HYDROCHLORIDE

REACTIONS (3)
  - Balance disorder [Unknown]
  - Fatigue [Unknown]
  - Product use in unapproved indication [Unknown]
